FAERS Safety Report 10493700 (Version 2)
Quarter: 2014Q4

REPORT INFORMATION
  Report Type: Spontaneous
  Country: US (occurrence: US)
  Receive Date: 20141002
  Receipt Date: 20141114
  Transmission Date: 20150528
  Serious: No
  Sender: FDA-Public Use
  Company Number: US-GLAXOSMITHKLINE-A1087259A

PATIENT
  Age: 64 Year
  Sex: Female

DRUGS (19)
  1. METOPROLOL [Concomitant]
     Active Substance: METOPROLOL
  2. ZOCOR [Concomitant]
     Active Substance: SIMVASTATIN
  3. NITROGLYCERIN. [Concomitant]
     Active Substance: NITROGLYCERIN
  4. METFORMIN [Concomitant]
     Active Substance: METFORMIN HYDROCHLORIDE
  5. GLIPIZIDE. [Concomitant]
     Active Substance: GLIPIZIDE
  6. ALLEGRA [Concomitant]
     Active Substance: FEXOFENADINE HYDROCHLORIDE
  7. HCTZ [Concomitant]
     Active Substance: HYDROCHLOROTHIAZIDE
  8. ASPIRIN. [Concomitant]
     Active Substance: ASPIRIN
  9. ADVAIR DISKUS [Suspect]
     Active Substance: FLUTICASONE PROPIONATE\SALMETEROL XINAFOATE
     Indication: EMPHYSEMA
  10. SPIRONOLACTONE. [Concomitant]
     Active Substance: SPIRONOLACTONE
  11. ALBUTEROL. [Concomitant]
     Active Substance: ALBUTEROL
  12. IMDUR [Concomitant]
     Active Substance: ISOSORBIDE MONONITRATE
  13. LEVODOPA/CARBIDOPA [Concomitant]
     Active Substance: CARBIDOPA\LEVODOPA
  14. GABAPENTIN. [Concomitant]
     Active Substance: GABAPENTIN
  15. ALBUTEROL NEBULIZER [Concomitant]
     Active Substance: ALBUTEROL
  16. ADVAIR DISKUS [Suspect]
     Active Substance: FLUTICASONE PROPIONATE\SALMETEROL XINAFOATE
     Indication: CHRONIC OBSTRUCTIVE PULMONARY DISEASE
     Dosage: 1 PUFF(S), BID
     Route: 055
  17. TRAZODONE [Concomitant]
     Active Substance: TRAZODONE HYDROCHLORIDE
  18. ATROVENT [Concomitant]
     Active Substance: IPRATROPIUM BROMIDE
  19. ADVAIR DISKUS [Suspect]
     Active Substance: FLUTICASONE PROPIONATE\SALMETEROL XINAFOATE
     Indication: ASTHMA

REACTIONS (2)
  - Product quality issue [Unknown]
  - Amnesia [Not Recovered/Not Resolved]

NARRATIVE: CASE EVENT DATE: 20140824
